FAERS Safety Report 13402490 (Version 1)
Quarter: 2017Q2

REPORT INFORMATION
  Report Type: Spontaneous
  Country: JP (occurrence: JP)
  Receive Date: 20170404
  Receipt Date: 20170404
  Transmission Date: 20170830
  Serious: Yes (Other)
  Sender: FDA-Public Use
  Company Number: JP-ALLERGAN-1712923US

PATIENT
  Age: 48 Year
  Sex: Female

DRUGS (1)
  1. MESALAZINE UNK [Suspect]
     Active Substance: MESALAMINE
     Indication: COLITIS ULCERATIVE
     Dosage: 2400 MG, QD
     Route: 065
     Dates: start: 201305, end: 201503

REACTIONS (2)
  - Nephropathy toxic [Unknown]
  - Renal impairment [Recovering/Resolving]
